FAERS Safety Report 6232429-3 (Version None)
Quarter: 2009Q2

REPORT INFORMATION
  Report Type: 
  Country: None (occurrence: None)
  Receive Date: 20090615
  Receipt Date: 20090605
  Transmission Date: 20091009
  Serious: Yes (Death)
  Sender: FDA-Public Use
  Company Number: OSCN-PR-0906S-0295

PATIENT
  Sex: Male

DRUGS (7)
  1. OMNISCAN [Suspect]
     Indication: DRUG USE FOR UNKNOWN INDICATION
     Dosage: SINGLE DOSE ; SINGLE DOSE ; SINGLE DOSE ; SINGLE DOSE ; SINGLE DOSE ; SINGLE DOSE
     Dates: start: 20000113, end: 20000113
  2. OMNISCAN [Suspect]
     Indication: DRUG USE FOR UNKNOWN INDICATION
     Dosage: SINGLE DOSE ; SINGLE DOSE ; SINGLE DOSE ; SINGLE DOSE ; SINGLE DOSE ; SINGLE DOSE
     Dates: start: 20021004, end: 20021004
  3. OMNISCAN [Suspect]
     Indication: DRUG USE FOR UNKNOWN INDICATION
     Dosage: SINGLE DOSE ; SINGLE DOSE ; SINGLE DOSE ; SINGLE DOSE ; SINGLE DOSE ; SINGLE DOSE
     Dates: start: 20031104, end: 20031104
  4. OMNISCAN [Suspect]
     Indication: DRUG USE FOR UNKNOWN INDICATION
     Dosage: SINGLE DOSE ; SINGLE DOSE ; SINGLE DOSE ; SINGLE DOSE ; SINGLE DOSE ; SINGLE DOSE
     Dates: start: 20041227, end: 20041227
  5. OMNISCAN [Suspect]
     Indication: DRUG USE FOR UNKNOWN INDICATION
     Dosage: SINGLE DOSE ; SINGLE DOSE ; SINGLE DOSE ; SINGLE DOSE ; SINGLE DOSE ; SINGLE DOSE
     Dates: start: 20050427, end: 20050427
  6. OMNISCAN [Suspect]
     Indication: DRUG USE FOR UNKNOWN INDICATION
     Dosage: SINGLE DOSE ; SINGLE DOSE ; SINGLE DOSE ; SINGLE DOSE ; SINGLE DOSE ; SINGLE DOSE
     Dates: start: 20051026, end: 20051026
  7. GADOPENTETATE DIMEGLUMINE (MAGNEVIST) [Concomitant]

REACTIONS (1)
  - NEPHROGENIC SYSTEMIC FIBROSIS [None]
